FAERS Safety Report 10083273 (Version 1)
Quarter: 2014Q2

REPORT INFORMATION
  Report Type: Spontaneous
  Country: US (occurrence: None)
  Receive Date: 20140415
  Receipt Date: 20140415
  Transmission Date: 20141212
  Serious: Yes (Other)
  Sender: FDA-Public Use
  Company Number: None

PATIENT
  Age: 13 Year
  Sex: Male
  Weight: 38.78 kg

DRUGS (1)
  1. VYVANSE 20 MG SHIRE LLC [Suspect]
     Indication: ATTENTION DEFICIT/HYPERACTIVITY DISORDER
     Dosage: 1 PILL, ONCE DAILY, TAKEN BY MOUTH
     Route: 048

REACTIONS (8)
  - Lethargy [None]
  - Fatigue [None]
  - Somnolence [None]
  - Sluggishness [None]
  - Speech disorder [None]
  - Somnolence [None]
  - Decreased eye contact [None]
  - Incoherent [None]
